FAERS Safety Report 8956710 (Version 1)
Quarter: 2012Q4

REPORT INFORMATION
  Report Type: Spontaneous
  Country: US (occurrence: None)
  Receive Date: 20121205
  Receipt Date: 20121205
  Transmission Date: 20130627
  Serious: Yes (Hospitalization)
  Sender: FDA-Public Use
  Company Number: None

PATIENT

DRUGS (2)
  1. KEPPRA [Suspect]
     Indication: URINARY TRACT INFECTION
     Dates: start: 20120801
  2. LEVAQUIN [Suspect]

REACTIONS (2)
  - Pyelonephritis [None]
  - Wrong drug administered [None]
